FAERS Safety Report 9587217 (Version 1)
Quarter: 2013Q4

REPORT INFORMATION
  Report Type: Spontaneous
  Country: NL (occurrence: NL)
  Receive Date: 20131003
  Receipt Date: 20131003
  Transmission Date: 20140711
  Serious: Yes (Other)
  Sender: FDA-Public Use
  Company Number: NL-GLAXOSMITHKLINE-B0926326A

PATIENT
  Age: 74 Year
  Sex: Female
  Weight: 60 kg

DRUGS (10)
  1. CITALOPRAM [Suspect]
     Indication: PRODUCT USED FOR UNKNOWN INDICATION
     Dosage: 10MG PER DAY
     Route: 048
     Dates: start: 20130603, end: 20130828
  2. ROPINIROLE [Suspect]
     Indication: PARKINSON^S DISEASE
     Route: 048
     Dates: start: 2010
  3. LEVODOPA/CARBIDOPA [Suspect]
     Indication: PARKINSON^S DISEASE
     Route: 048
     Dates: start: 2011
  4. DOMPERIDON [Suspect]
     Indication: PRODUCT USED FOR UNKNOWN INDICATION
     Dosage: 10MG FOUR TIMES PER DAY
     Route: 048
     Dates: start: 2011
  5. PROPANOLOL [Suspect]
     Indication: ANXIETY
     Dosage: 10MG TWICE PER DAY
     Route: 048
     Dates: start: 201305
  6. PANTOPRAZOL [Concomitant]
     Dosage: 40MG PER DAY
     Route: 048
     Dates: start: 20130527
  7. ACETYLSALICYLZUUR [Concomitant]
     Dosage: 80MG PER DAY
     Route: 048
     Dates: start: 20130527
  8. BISACODYL [Concomitant]
     Dosage: 10MG UNKNOWN
     Route: 054
     Dates: start: 20130524
  9. METOPROLOL [Concomitant]
     Dosage: 50MG PER DAY
     Route: 048
     Dates: start: 20130527, end: 20130815
  10. RASAGILINE [Concomitant]
     Dosage: 1MG PER DAY
     Route: 048
     Dates: start: 20130527

REACTIONS (1)
  - Hemianopia [Recovered/Resolved]
